FAERS Safety Report 5937883-X (Version None)
Quarter: 2008Q4

REPORT INFORMATION
  Report Type: 
  Country: None (occurrence: None)
  Receive Date: 20081031
  Receipt Date: 20081022
  Transmission Date: 20090506
  Serious: Yes (Hospitalization)
  Sender: FDA-Public Use
  Company Number: DE-PFIZER INC-2008089091

PATIENT
  Age: 61 Year
  Sex: Male

DRUGS (4)
  1. VIAGRA [Suspect]
  2. LYRICA [Concomitant]
  3. SPIRIVA [Concomitant]
  4. ANTI-ASTHMATICS [Concomitant]

REACTIONS (1)
  - CARDIOVASCULAR DISORDER [None]
